FAERS Safety Report 14203974 (Version 1)
Quarter: 2017Q4

REPORT INFORMATION
  Report Type: Spontaneous
  Country: US (occurrence: None)
  Receive Date: 20171117
  Receipt Date: 20171117
  Transmission Date: 20180321
  Serious: Yes (Other)
  Sender: FDA-Public Use
  Company Number: None

PATIENT
  Age: 66 Year
  Sex: Male
  Weight: 113.85 kg

DRUGS (1)
  1. ZEPATIER [Suspect]
     Active Substance: ELBASVIR\GRAZOPREVIR
     Indication: HEPATITIS C
     Dosage: 50-100 MG DAILY ORAL
     Route: 048
     Dates: start: 20171112, end: 20171114

REACTIONS (3)
  - Dyspnoea [None]
  - Lip swelling [None]
  - Throat tightness [None]

NARRATIVE: CASE EVENT DATE: 20171113
